FAERS Safety Report 16177028 (Version 1)
Quarter: 2019Q2

REPORT INFORMATION
  Report Type: Spontaneous
  Country: IT (occurrence: IT)
  Receive Date: 20190409
  Receipt Date: 20190409
  Transmission Date: 20190711
  Serious: Yes (Other)
  Sender: FDA-Public Use
  Company Number: IT-MYLANLABS-2019M1033140

PATIENT
  Age: 88 Year

DRUGS (3)
  1. DIDROGYL [Concomitant]
     Active Substance: CALCIFEDIOL
     Dosage: UNK
  2. ARCOXIA [Suspect]
     Active Substance: ETORICOXIB
     Indication: MUSCULOSKELETAL PAIN
     Dosage: 30 MILLIGRAM, ONCE (TOTAL)
     Route: 048
     Dates: start: 20180122, end: 20180122
  3. BRUFEN [Suspect]
     Active Substance: IBUPROFEN
     Indication: MUSCULOSKELETAL PAIN
     Dosage: 400 MILLIGRAM, ONCE (TOTAL)
     Route: 048
     Dates: start: 20180122, end: 20180122

REACTIONS (4)
  - Confusional state [Recovering/Resolving]
  - Hypertensive crisis [Recovering/Resolving]
  - Nausea [Recovering/Resolving]
  - Vomiting [Recovering/Resolving]

NARRATIVE: CASE EVENT DATE: 20180122
